FAERS Safety Report 23137074 (Version 1)
Quarter: 2023Q4

REPORT INFORMATION
  Report Type: Spontaneous
  Country: US (occurrence: US)
  Receive Date: 20231102
  Receipt Date: 20231102
  Transmission Date: 20240110
  Serious: Yes (Hospitalization)
  Sender: FDA-Public Use
  Company Number: US-STERISCIENCE B.V.-2023-ST-002110

PATIENT
  Age: 5 Year
  Sex: Male

DRUGS (17)
  1. VANCOMYCIN [Suspect]
     Active Substance: VANCOMYCIN
     Indication: Bacillus infection
     Dosage: INFUSION 100MG/L
     Route: 061
  2. VANCOMYCIN [Suspect]
     Active Substance: VANCOMYCIN
     Indication: Enterobacter infection
     Dosage: UNK
     Route: 042
  3. VANCOMYCIN [Suspect]
     Active Substance: VANCOMYCIN
     Indication: Bacterial infection
     Dosage: 20MG/ML
     Route: 061
  4. AMPHOTERICIN B [Suspect]
     Active Substance: AMPHOTERICIN B
     Indication: Fusarium infection
     Dosage: INFUSION, 0.1 % STRENGTH
     Route: 061
  5. AMPHOTERICIN B [Suspect]
     Active Substance: AMPHOTERICIN B
     Dosage: 15 % STRENGTH
     Route: 061
  6. MICONAZOLE [Suspect]
     Active Substance: MICONAZOLE
     Indication: Fusarium infection
     Dosage: INFUSION
     Route: 061
  7. MICONAZOLE [Suspect]
     Active Substance: MICONAZOLE
     Dosage: UNK
     Route: 061
  8. GENTAMICIN [Suspect]
     Active Substance: GENTAMICIN
     Indication: Bacillus infection
     Dosage: INFUSION 100MG/L
     Route: 061
  9. GENTAMICIN [Suspect]
     Active Substance: GENTAMICIN
     Indication: Enterobacter infection
  10. GENTAMICIN [Suspect]
     Active Substance: GENTAMICIN
     Indication: Bacterial infection
  11. FLUCONAZOLE [Suspect]
     Active Substance: FLUCONAZOLE
     Indication: Fusarium infection
     Dosage: 100 MILLIGRAM, QD
     Route: 048
  12. CEFTAZIDIME [Suspect]
     Active Substance: CEFTAZIDIME
     Indication: Bacillus infection
     Dosage: UNK
     Route: 042
  13. CEFTAZIDIME [Suspect]
     Active Substance: CEFTAZIDIME
     Indication: Enterobacter infection
  14. CEFTAZIDIME [Suspect]
     Active Substance: CEFTAZIDIME
     Indication: Bacterial infection
  15. TOBRAMYCIN [Suspect]
     Active Substance: TOBRAMYCIN
     Indication: Bacillus infection
     Dosage: 1 DROP, Q4H (14MG/ML)
     Route: 061
  16. TOBRAMYCIN [Suspect]
     Active Substance: TOBRAMYCIN
     Indication: Enterobacter infection
  17. TOBRAMYCIN [Suspect]
     Active Substance: TOBRAMYCIN
     Indication: Bacterial infection

REACTIONS (2)
  - Keratitis bacterial [Recovered/Resolved]
  - Off label use [Unknown]
